FAERS Safety Report 8588910-5 (Version None)
Quarter: 2012Q3

REPORT INFORMATION
  Report Type: 
  Country: None (occurrence: None)
  Receive Date: 20120813
  Receipt Date: 20120801
  Transmission Date: 20120928
  Serious: Yes (Hospitalization)
  Sender: FDA-Public Use
  Company Number: US-BAYER-2012-079385

PATIENT
  Age: 53 Year
  Sex: Female

DRUGS (7)
  1. YAZ [Suspect]
     Dosage: UNK
     Dates: start: 20100807, end: 20101013
  2. DROSPIRENONE AND ETHINYL ESTRADIOL [Suspect]
     Dosage: UNK
     Dates: start: 20100526
  3. YASMIN [Suspect]
  4. TRAMADOL HCL [Concomitant]
     Dosage: 50 MG, UNK
  5. CLARITHROMYCIN [Concomitant]
     Dosage: 500 MG, UNK
     Dates: start: 20110105
  6. CYCLOBENLAPR [Concomitant]
     Dosage: 10 MG, UNK
  7. CLARITIN-D [Concomitant]
     Dosage: UNK UNK, BID
     Dates: start: 20110124

REACTIONS (2)
  - PULMONARY EMBOLISM [None]
  - DEEP VEIN THROMBOSIS [None]
